FAERS Safety Report 6737841-1 (Version None)
Quarter: 2010Q2

REPORT INFORMATION
  Report Type: 
  Country: None (occurrence: None)
  Receive Date: 20100524
  Receipt Date: 20100517
  Transmission Date: 20101027
  Serious: Yes (Hospitalization)
  Sender: FDA-Public Use
  Company Number: US-ASTRAZENECA-2010SE22398

PATIENT
  Sex: Female

DRUGS (2)
  1. SEROQUEL [Suspect]
     Indication: BIPOLAR DISORDER
     Route: 048
  2. SEROQUEL [Suspect]
     Indication: RAPID EYE MOVEMENTS SLEEP ABNORMAL
     Route: 048

REACTIONS (3)
  - ILL-DEFINED DISORDER [None]
  - INSOMNIA [None]
  - TREMOR [None]
